FAERS Safety Report 9258336 (Version 1)
Quarter: 2013Q2

REPORT INFORMATION
  Report Type: Spontaneous
  Country: US (occurrence: None)
  Receive Date: 20130424
  Receipt Date: 20130424
  Transmission Date: 20140414
  Serious: No
  Sender: FDA-Public Use
  Company Number: None

PATIENT
  Age: 32 Year
  Sex: Male
  Weight: 86.18 kg

DRUGS (2)
  1. VENLAFAXINE XR [Suspect]
     Indication: ANXIETY DISORDER
     Dates: start: 20100602, end: 20100716
  2. VENLAFAXINE XR [Suspect]
     Indication: BIPOLAR DISORDER
     Dates: start: 20100602, end: 20100716

REACTIONS (5)
  - Depression [None]
  - Tachyphrenia [None]
  - Product substitution issue [None]
  - Anger [None]
  - Drug intolerance [None]
